FAERS Safety Report 4600350-X (Version None)
Quarter: 2005Q1

REPORT INFORMATION
  Report Type: 
  Country: None (occurrence: None)
  Receive Date: 20050303
  Receipt Date: 20050216
  Transmission Date: 20050727
  Serious: Yes (Other)
  Sender: FDA-Public Use
  Company Number: USA040258778

PATIENT
  Age: 43 Year
  Sex: Female

DRUGS (5)
  1. FORTEO [Suspect]
     Indication: OSTEOPOROSIS
     Dosage: 20 UG/1 DAY
     Dates: start: 20030901
  2. VERAPAMIL [Concomitant]
  3. LIPITOR [Concomitant]
  4. AMITRIPTYLINE HCL [Concomitant]
  5. CALCIUM WITH VITAMIN D [Concomitant]

REACTIONS (2)
  - CALCULUS URINARY [None]
  - NEPHROLITHIASIS [None]
